FAERS Safety Report 19198899 (Version 1)
Quarter: 2021Q2

REPORT INFORMATION
  Report Type: Spontaneous
  Country: US (occurrence: US)
  Receive Date: 20210429
  Receipt Date: 20210429
  Transmission Date: 20210717
  Serious: No
  Sender: FDA-Public Use
  Company Number: US-ROCHE-2654167

PATIENT
  Age: 57 Year
  Sex: Female
  Weight: 77.4 kg

DRUGS (2)
  1. COMPAZINE [Concomitant]
     Active Substance: PROCHLORPERAZINE MALEATE
     Indication: NAUSEA
     Dosage: AS NEEDED ;ONGOING: UNKNOWN
  2. KADCYLA [Suspect]
     Active Substance: ADO-TRASTUZUMAB EMTANSINE
     Indication: BREAST CANCER
     Dosage: YES
     Route: 042
     Dates: start: 20200615

REACTIONS (2)
  - Vision blurred [Recovered/Resolved]
  - Corneal deposits [Not Recovered/Not Resolved]

NARRATIVE: CASE EVENT DATE: 202007
